FAERS Safety Report 20258406 (Version 3)
Quarter: 2022Q1

REPORT INFORMATION
  Report Type: Report from Study
  Country: AR (occurrence: AR)
  Receive Date: 20211230
  Receipt Date: 20220330
  Transmission Date: 20220423
  Serious: Yes (Hospitalization)
  Sender: FDA-Public Use
  Company Number: AR-NOVARTISPH-NVSC2021AR290581

PATIENT
  Age: 66 Year
  Sex: Female

DRUGS (3)
  1. AFINITOR [Suspect]
     Active Substance: EVEROLIMUS
     Indication: Breast cancer metastatic
     Dosage: 10 MG, QD
     Route: 048
     Dates: start: 20210921
  2. AFINITOR [Suspect]
     Active Substance: EVEROLIMUS
     Dosage: UNK
     Route: 065
     Dates: end: 20211222
  3. DANLOX [Concomitant]
     Indication: Abdominal discomfort
     Dosage: UNK
     Route: 065

REACTIONS (10)
  - Malaise [Unknown]
  - Diabetic neuropathy [Unknown]
  - Gait inability [Unknown]
  - Hyperglycaemia [Unknown]
  - Renal disorder [Unknown]
  - Diabetes mellitus [Unknown]
  - Disorganised speech [Unknown]
  - Tremor [Unknown]
  - Dehydration [Unknown]
  - Illness [Unknown]

NARRATIVE: CASE EVENT DATE: 20211210
